FAERS Safety Report 5106753-1 (Version None)
Quarter: 2006Q3

REPORT INFORMATION
  Report Type: 
  Country: None (occurrence: None)
  Receive Date: 20060918
  Receipt Date: 20060824
  Transmission Date: 20061208
  Serious: Yes (Other)
  Sender: FDA-Public Use
  Company Number: CA-AMGEN-US191066

PATIENT
  Sex: Male

DRUGS (12)
  1. ARANESP [Suspect]
     Indication: RENAL FAILURE CHRONIC
     Route: 058
     Dates: start: 20040701, end: 20060821
  2. CITALOPRAM HYDROBROMIDE [Concomitant]
     Dates: start: 20060630
  3. HEPARIN [Concomitant]
     Route: 058
     Dates: start: 20060124
  4. AMLODIPINE [Concomitant]
     Dates: start: 20060227
  5. ASCORBIC ACID [Concomitant]
     Dates: start: 20060611
  6. CYCLOSPORINE [Concomitant]
     Dates: start: 20060618
  7. CLONAZEPAM [Concomitant]
     Dates: start: 20060205
  8. PREDNISONE [Concomitant]
     Dates: start: 20060218
  9. NYSTATIN [Concomitant]
     Dates: start: 20060119
  10. FENTANYL [Concomitant]
     Route: 061
     Dates: start: 20060516
  11. INSULIN [Concomitant]
  12. FAMOTIDINE [Concomitant]
     Dates: start: 20060119

REACTIONS (4)
  - DRUG INEFFECTIVE [None]
  - ERYTHROPENIA [None]
  - HYPERTHERMIA [None]
  - WHITE BLOOD CELL COUNT INCREASED [None]
